FAERS Safety Report 5753080-5 (Version None)
Quarter: 2008Q2

REPORT INFORMATION
  Report Type: 
  Country: None (occurrence: None)
  Receive Date: 20080527
  Receipt Date: 20080516
  Transmission Date: 20081010
  Serious: Yes (Hospitalization)
  Sender: FDA-Public Use
  Company Number: GXKR2008DK04571

PATIENT
  Age: 66 Year
  Sex: Female

DRUGS (2)
  1. SIMVASTATIN [Suspect]
     Dosage: ORAL
     Route: 048
     Dates: start: 20030801
  2. PREDNISOLONE [Suspect]
     Dosage: ORAL
     Route: 048
     Dates: start: 20030801

REACTIONS (3)
  - GASTRIC ULCER HAEMORRHAGE [None]
  - MEDICATION ERROR [None]
  - POLYMYOSITIS [None]
